FAERS Safety Report 18910782 (Version 1)
Quarter: 2021Q1

REPORT INFORMATION
  Report Type: Spontaneous
  Country: US (occurrence: US)
  Receive Date: 20210218
  Receipt Date: 20210218
  Transmission Date: 20210420
  Serious: No
  Sender: FDA-Public Use
  Company Number: US-LEO PHARMA-334675

PATIENT
  Age: 54 Year
  Sex: Male

DRUGS (2)
  1. PICATO [Suspect]
     Active Substance: INGENOL MEBUTATE
     Indication: ACTINIC KERATOSIS
     Dates: start: 20210201, end: 20210203
  2. PICATO [Suspect]
     Active Substance: INGENOL MEBUTATE
     Dosage: USED IT ON RIGHT EAR AND FACE
     Dates: start: 202001

REACTIONS (4)
  - Application site dryness [Not Recovered/Not Resolved]
  - Inappropriate schedule of product administration [Unknown]
  - Application site pain [Not Recovered/Not Resolved]
  - Headache [Not Recovered/Not Resolved]
